FAERS Safety Report 20237338 (Version 4)
Quarter: 2022Q1

REPORT INFORMATION
  Report Type: Spontaneous
  Country: US (occurrence: US)
  Receive Date: 20211228
  Receipt Date: 20220304
  Transmission Date: 20220424
  Serious: No
  Sender: FDA-Public Use
  Company Number: US-KARYOPHARM-2021KPT001592

PATIENT

DRUGS (3)
  1. XPOVIO [Suspect]
     Active Substance: SELINEXOR
     Indication: Plasma cell myeloma
     Dosage: 40 MG, WEEKLY
     Route: 048
     Dates: start: 20211208, end: 202202
  2. GABAPENTIN [Concomitant]
     Active Substance: GABAPENTIN
     Dosage: 100 MG, QD
     Route: 048
  3. FENTANYL TRANSDERMAL SYSTEM [Concomitant]
     Active Substance: FENTANYL
     Dosage: 25 UG, Q72H
     Route: 062

REACTIONS (10)
  - Arthralgia [Unknown]
  - Somnolence [Not Recovered/Not Resolved]
  - Mass [Unknown]
  - Memory impairment [Not Recovered/Not Resolved]
  - Ageusia [Unknown]
  - Plasma cell myeloma [Unknown]
  - Nausea [Unknown]
  - Weight decreased [Unknown]
  - Fatigue [Unknown]
  - Product dose omission issue [Unknown]

NARRATIVE: CASE EVENT DATE: 20210101
